FAERS Safety Report 19626414 (Version 2)
Quarter: 2022Q3

REPORT INFORMATION
  Report Type: Report from Study
  Country: CN (occurrence: CN)
  Receive Date: 20210729
  Receipt Date: 20220715
  Transmission Date: 20221027
  Serious: Yes (Other)
  Sender: FDA-Public Use
  Company Number: CN-PFIZER INC-202100922235

PATIENT
  Age: 64 Year
  Sex: Female

DRUGS (3)
  1. METHOTREXATE [Suspect]
     Active Substance: METHOTREXATE
     Indication: Retinal neoplasm
     Dosage: ONCE-WEEKLY 400 UG/0.1 ML MTX
  2. METHOTREXATE [Suspect]
     Active Substance: METHOTREXATE
     Dosage: EVERY 2 WEEKS FOR 1 MONTH, CYCLIC 400 UG/0.1ML MTX (CONSOLIDATION PHASE)
  3. METHOTREXATE [Suspect]
     Active Substance: METHOTREXATE
     Dosage: ONCE-MONTHLY 400 UG/0.1 ML MTX (MAINTENANCE PAHSE) ADDING UPTO A TOTAL OF 7 INJECTIONS

REACTIONS (1)
  - Retinal pigment epitheliopathy [Unknown]
